FAERS Safety Report 20236664 (Version 2)
Quarter: 2022Q1

REPORT INFORMATION
  Report Type: Spontaneous
  Country: US (occurrence: US)
  Receive Date: 20211228
  Receipt Date: 20220303
  Transmission Date: 20220423
  Serious: Yes (Other)
  Sender: FDA-Public Use
  Company Number: US-ROCHE-2991004

PATIENT
  Sex: Female

DRUGS (1)
  1. XOLAIR [Suspect]
     Active Substance: OMALIZUMAB
     Indication: Idiopathic urticaria
     Dosage: 150 MG, BIW(150 MG/ML ROUTE: UNDER THE SKIN  )
     Route: 065
     Dates: start: 20210922

REACTIONS (2)
  - Off label use [Unknown]
  - No adverse event [Unknown]
